FAERS Safety Report 15304569 (Version 2)
Quarter: 2018Q4

REPORT INFORMATION
  Report Type: Report from Study
  Country: US (occurrence: US)
  Receive Date: 20180821
  Receipt Date: 20181016
  Transmission Date: 20190204
  Serious: No
  Sender: FDA-Public Use
  Company Number: US-AMGEN INC.-USASL2018114005

PATIENT
  Age: 50 Year
  Sex: Female

DRUGS (1)
  1. AIMOVIG [Suspect]
     Active Substance: ERENUMAB-AOOE
     Indication: MIGRAINE WITHOUT AURA
     Dosage: 70 MG, QMO
     Route: 065
     Dates: start: 201808

REACTIONS (9)
  - Blepharospasm [Unknown]
  - Night sweats [Recovered/Resolved]
  - Dysgeusia [Recovered/Resolved]
  - Abnormal sensation in eye [Unknown]
  - Skin odour abnormal [Recovered/Resolved]
  - Chills [Recovered/Resolved]
  - Therapeutic response unexpected [Unknown]
  - Headache [Unknown]
  - Sensory disturbance [Recovered/Resolved]

NARRATIVE: CASE EVENT DATE: 2018
